FAERS Safety Report 9615141 (Version 1)
Quarter: 2013Q4

REPORT INFORMATION
  Report Type: Spontaneous
  Country: US (occurrence: US)
  Receive Date: 20131011
  Receipt Date: 20131011
  Transmission Date: 20140711
  Serious: No
  Sender: FDA-Public Use
  Company Number: US-PURDUE-USA-2013-0097736

PATIENT
  Sex: Female

DRUGS (3)
  1. BUTRANS [Suspect]
     Indication: PAIN
     Dosage: 10 MCG, WEEKLY
     Route: 062
     Dates: start: 20130112, end: 20130116
  2. BUTRANS [Suspect]
     Dosage: 5 MCG, WEEKLY
     Route: 062
     Dates: start: 201211, end: 201212
  3. BUTRANS [Suspect]
     Dosage: 5 MCG, WEEKLY
     Route: 062
     Dates: start: 201212, end: 201301

REACTIONS (2)
  - Product contamination [Unknown]
  - Application site vesicles [Not Recovered/Not Resolved]
